FAERS Safety Report 7522311-3 (Version None)
Quarter: 2011Q2

REPORT INFORMATION
  Report Type: 
  Country: None (occurrence: None)
  Receive Date: 20110603
  Receipt Date: 20110523
  Transmission Date: 20111010
  Serious: Yes (Hospitalization)
  Sender: FDA-Public Use
  Company Number: PHHY2011US44502

PATIENT
  Age: 40 Year
  Sex: Male
  Weight: 73 kg

DRUGS (12)
  1. PREDNISONE [Concomitant]
     Indication: PROPHYLAXIS AGAINST TRANSPLANT REJECTION
     Dosage: 5 MG DAILY
     Route: 048
     Dates: start: 20021023
  2. FLOMAX [Concomitant]
     Dosage: 0.4 MG DAILY
     Route: 048
     Dates: start: 20010419
  3. SIROLIMUS [Concomitant]
     Indication: PROPHYLAXIS AGAINST TRANSPLANT REJECTION
     Dosage: UNK
  4. MAGNESIUM OXIDE [Concomitant]
     Dosage: 400 MG DAILY
     Route: 048
     Dates: start: 20010419
  5. PRILOSEC [Concomitant]
     Indication: GASTROOESOPHAGEAL REFLUX DISEASE
     Dosage: 20 MG DAILY
     Route: 048
     Dates: start: 20010419
  6. MYCELEX [Concomitant]
     Indication: ORAL CANDIDIASIS
     Dosage: 10 MG, PRN
     Dates: start: 20010419
  7. SANDIMMUNE [Suspect]
     Indication: RENAL TRANSPLANT
     Dosage: UNK
  8. CELLCEPT [Concomitant]
     Indication: PROPHYLAXIS AGAINST TRANSPLANT REJECTION
     Dosage: 1000 MG DAILY
     Route: 048
     Dates: start: 20010419
  9. AZATHIOPRINE [Concomitant]
     Indication: PROPHYLAXIS AGAINST TRANSPLANT REJECTION
     Dosage: UNK
  10. PROZAC [Concomitant]
     Indication: DEPRESSION
     Dosage: 10 MG DAILY
     Route: 048
     Dates: start: 20000505
  11. LOPID [Concomitant]
     Indication: HYPERLIPIDAEMIA
     Dosage: 1200 MG DAILY
     Route: 048
     Dates: start: 20010419
  12. ISOSORBIDE MONONITRATE [Concomitant]
     Indication: ANGINA PECTORIS
     Dosage: 60 MG DAILY
     Route: 048
     Dates: start: 20010419

REACTIONS (2)
  - MUSCLE RUPTURE [None]
  - PALPITATIONS [None]
